FAERS Safety Report 16326213 (Version 1)
Quarter: 2019Q2

REPORT INFORMATION
  Report Type: Spontaneous
  Country: US (occurrence: US)
  Receive Date: 20190517
  Receipt Date: 20190517
  Transmission Date: 20190711
  Serious: No
  Sender: FDA-Public Use
  Company Number: US-009507513-1905USA006666

PATIENT
  Age: 20 Year
  Sex: Female

DRUGS (2)
  1. NEXPLANON [Suspect]
     Active Substance: ETONOGESTREL
     Dosage: 1 ROD
     Dates: end: 20190509
  2. NEXPLANON [Suspect]
     Active Substance: ETONOGESTREL
     Dosage: 1 ROD
     Route: 065
     Dates: start: 20190509

REACTIONS (5)
  - Device difficult to use [Recovered/Resolved]
  - Product quality issue [Unknown]
  - Aggression [Unknown]
  - Device kink [Recovered/Resolved]
  - Implant site scar [Unknown]

NARRATIVE: CASE EVENT DATE: 20190509
